FAERS Safety Report 17835201 (Version 1)
Quarter: 2020Q2

REPORT INFORMATION
  Report Type: Spontaneous
  Country: US (occurrence: US)
  Receive Date: 20200528
  Receipt Date: 20200528
  Transmission Date: 20200714
  Serious: No
  Sender: FDA-Public Use
  Company Number: None

PATIENT
  Age: 43 Year
  Sex: Female

DRUGS (1)
  1. IVERMECTIN. [Suspect]
     Active Substance: IVERMECTIN
     Indication: ROSACEA
     Dosage: ?          QUANTITY:45 GRAMS;?
     Route: 061
     Dates: start: 20200526, end: 20200528

REACTIONS (5)
  - Product substitution issue [None]
  - Headache [None]
  - Burning sensation [None]
  - Eye irritation [None]
  - Product odour abnormal [None]

NARRATIVE: CASE EVENT DATE: 20200528
